FAERS Safety Report 8614375-0 (Version None)
Quarter: 2012Q3

REPORT INFORMATION
  Report Type: 
  Country: None (occurrence: None)
  Receive Date: 20120823
  Receipt Date: 20120813
  Transmission Date: 20120928
  Serious: Yes (Hospitalization, Disabling, Other)
  Sender: FDA-Public Use
  Company Number: US-009507513-2011SP058947

PATIENT

DRUGS (2)
  1. NUVARING [Suspect]
     Dates: start: 20100126, end: 20101123
  2. NUVARING [Suspect]
     Indication: CONTRACEPTION
     Dates: start: 20030101

REACTIONS (23)
  - ANXIETY [None]
  - METABOLIC ACIDOSIS [None]
  - RASH [None]
  - RENAL CYST [None]
  - UTERINE LEIOMYOMA [None]
  - CERVICAL DYSPLASIA [None]
  - AVULSION FRACTURE [None]
  - URINARY TRACT INFECTION [None]
  - DEEP VEIN THROMBOSIS [None]
  - CERVIX CARCINOMA [None]
  - HYDRONEPHROSIS [None]
  - NASOPHARYNGITIS [None]
  - BACK PAIN [None]
  - PARANOIA [None]
  - ABDOMINAL PAIN [None]
  - SINUS TACHYCARDIA [None]
  - CELLULITIS [None]
  - RENAL FAILURE CHRONIC [None]
  - MUSCULOSKELETAL CHEST PAIN [None]
  - DYSPNOEA [None]
  - RENAL INJURY [None]
  - PULMONARY EMBOLISM [None]
  - FEAR [None]
